FAERS Safety Report 14262563 (Version 1)
Quarter: 2017Q4

REPORT INFORMATION
  Report Type: Report from Study
  Country: US (occurrence: US)
  Receive Date: 20171208
  Receipt Date: 20171208
  Transmission Date: 20180321
  Serious: Yes (Death)
  Sender: FDA-Public Use
  Company Number: US-GUERBET-US-20170237

PATIENT
  Age: 63 Year
  Sex: Male

DRUGS (4)
  1. SODIUM TETRADECYL SULFATE [Suspect]
     Active Substance: SODIUM TETRADECYL SULFATE
     Indication: BALLOON-OCCLUDED RETROGRADE TRANSVENOUS OBLITERATION
     Route: 065
  2. LIPIODOL [Suspect]
     Active Substance: ETHIODIZED OIL
     Indication: BALLOON-OCCLUDED RETROGRADE TRANSVENOUS OBLITERATION
     Route: 042
  3. MIDAZOLAM [Concomitant]
     Active Substance: MIDAZOLAM HYDROCHLORIDE
     Indication: SEDATION
     Route: 042
  4. FENTANYL. [Concomitant]
     Active Substance: FENTANYL
     Indication: SEDATION
     Route: 042

REACTIONS (2)
  - Disseminated intravascular coagulation [Fatal]
  - Product use in unapproved indication [Fatal]
